FAERS Safety Report 18523605 (Version 2)
Quarter: 2020Q4

REPORT INFORMATION
  Report Type: Spontaneous
  Country: CA (occurrence: CA)
  Receive Date: 20201119
  Receipt Date: 20201124
  Transmission Date: 20210114
  Serious: No
  Sender: FDA-Public Use
  Company Number: CA-PFIZER INC-2020453238

PATIENT
  Age: 52 Year
  Sex: Female

DRUGS (1)
  1. SULFASALAZINE. [Suspect]
     Active Substance: SULFASALAZINE
     Indication: PSORIATIC ARTHROPATHY
     Route: 065

REACTIONS (6)
  - Arthralgia [Unknown]
  - Off label use [Unknown]
  - Drug hypersensitivity [Unknown]
  - Pyrexia [Unknown]
  - Product use in unapproved indication [Unknown]
  - Influenza like illness [Unknown]
